FAERS Safety Report 12519942 (Version 2)
Quarter: 2017Q3

REPORT INFORMATION
  Report Type: Report from Study
  Country: PH (occurrence: PH)
  Receive Date: 20160630
  Receipt Date: 20170921
  Transmission Date: 20171127
  Serious: Yes (Hospitalization, Other)
  Sender: FDA-Public Use
  Company Number: PH-009507513-1606PHL010536

PATIENT
  Age: 58 Year
  Sex: Male

DRUGS (1)
  1. JANUMET [Suspect]
     Active Substance: METFORMIN HYDROCHLORIDE\SITAGLIPTIN PHOSPHATE
     Indication: DIABETES MELLITUS
     Dosage: 50/500MG, 1 TABLET, TWICE A DAY
     Route: 048

REACTIONS (4)
  - Hypertension [Recovered/Resolved with Sequelae]
  - Cerebrovascular accident [Unknown]
  - Inappropriate schedule of drug administration [Unknown]
  - Blood cholesterol increased [Recovered/Resolved with Sequelae]

NARRATIVE: CASE EVENT DATE: 20160622
